FAERS Safety Report 15770174 (Version 1)
Quarter: 2018Q4

REPORT INFORMATION
  Report Type: Spontaneous
  Country: US (occurrence: US)
  Receive Date: 20181227
  Receipt Date: 20181227
  Transmission Date: 20190205
  Serious: Yes (Other)
  Sender: FDA-Public Use
  Company Number: None

PATIENT
  Age: 73 Year
  Sex: Male
  Weight: 85.5 kg

DRUGS (1)
  1. AZITHROMYCIN TABLETS USP 250 MG NDC 50111-787-5 1 [Suspect]
     Active Substance: AZITHROMYCIN
     Indication: PRODUCT USED FOR UNKNOWN INDICATION
     Dosage: ?          QUANTITY:2 TABLET(S);OTHER FREQUENCY:2 THEN 1 PER DAY;?
     Route: 048
     Dates: start: 20181218, end: 20181219

REACTIONS (4)
  - Muscle spasms [None]
  - Tremor [None]
  - Chills [None]
  - Diarrhoea haemorrhagic [None]

NARRATIVE: CASE EVENT DATE: 20181218
